FAERS Safety Report 5692628-6 (Version None)
Quarter: 2008Q2

REPORT INFORMATION
  Report Type: 
  Country: None (occurrence: None)
  Receive Date: 20080401
  Receipt Date: 20080326
  Transmission Date: 20081010
  Serious: Yes (Hospitalization)
  Sender: FDA-Public Use
  Company Number: 2008SP003981

PATIENT
  Age: 69 Year
  Sex: Male
  Weight: 73.9363 kg

DRUGS (3)
  1. TEMODAR [Suspect]
     Indication: GLIOMA
     Dosage: 75 MG/M2; QD; PO
     Route: 048
     Dates: start: 20070601, end: 20070701
  2. BACTRIM [Suspect]
     Indication: ANTIFUNGAL PROPHYLAXIS
     Dosage: ; TIW; PO
     Route: 048
     Dates: start: 20070601, end: 20070701
  3. BACTRIM [Suspect]
     Indication: PNEUMOCYSTIS JIROVECI PNEUMONIA
     Dosage: ; TIW; PO
     Route: 048
     Dates: start: 20070601, end: 20070701

REACTIONS (1)
  - HEPATIC FAILURE [None]
